FAERS Safety Report 5251077-5 (Version None)
Quarter: 2007Q1

REPORT INFORMATION
  Report Type: 
  Country: None (occurrence: None)
  Receive Date: 20070228
  Receipt Date: 20060821
  Transmission Date: 20070707
  Serious: No
  Sender: FDA-Public Use
  Company Number: US-GLAXOSMITHKLINE-A0617485A

PATIENT
  Sex: Female

DRUGS (2)
  1. LAMICTAL [Suspect]
     Indication: BIPOLAR DISORDER
     Dosage: 300MG PER DAY
     Route: 048
  2. NEURONTIN [Concomitant]

REACTIONS (4)
  - HYPERHIDROSIS [None]
  - PYREXIA [None]
  - RASH PRURITIC [None]
  - SKIN LESION [None]
